FAERS Safety Report 8165754-X (Version None)
Quarter: 2012Q1

REPORT INFORMATION
  Report Type: 
  Country: None (occurrence: None)
  Receive Date: 20120223
  Receipt Date: 20120223
  Transmission Date: 20120608
  Serious: No
  Sender: FDA-Public Use
  Company Number: None

PATIENT
  Age: 61 Year
  Sex: Female
  Weight: 101.6057 kg

DRUGS (1)
  1. LOSARTAN POTASSIUM [Suspect]
     Indication: HYPERTENSION
     Dates: start: 20111001, end: 20111024

REACTIONS (12)
  - VOMITING [None]
  - TINNITUS [None]
  - HEARING IMPAIRED [None]
  - OEDEMA PERIPHERAL [None]
  - BACK PAIN [None]
  - MUSCLE SPASMS [None]
  - HYPOAESTHESIA [None]
  - PAIN [None]
  - CHILLS [None]
  - MUSCLE ATROPHY [None]
  - ABDOMINAL PAIN UPPER [None]
  - CARPAL TUNNEL SYNDROME [None]
